FAERS Safety Report 21460482 (Version 2)
Quarter: 2022Q4

REPORT INFORMATION
  Report Type: Spontaneous
  Country: US (occurrence: US)
  Receive Date: 20221014
  Receipt Date: 20221018
  Transmission Date: 20230113
  Serious: No
  Sender: FDA-Public Use
  Company Number: US-009507513-2210USA002154

PATIENT
  Age: 91 Year
  Sex: Female

DRUGS (1)
  1. TRUSOPT [Suspect]
     Active Substance: DORZOLAMIDE HYDROCHLORIDE
     Indication: Glaucoma
     Dosage: REFUSED, EYE DROPS
     Dates: start: 199510

REACTIONS (4)
  - Malaise [Unknown]
  - General symptom [Unknown]
  - Therapy cessation [Unknown]
  - Product availability issue [Unknown]

NARRATIVE: CASE EVENT DATE: 20221007
